FAERS Safety Report 18881430 (Version 1)
Quarter: 2021Q1

REPORT INFORMATION
  Report Type: Spontaneous
  Country: US (occurrence: US)
  Receive Date: 20210211
  Receipt Date: 20210211
  Transmission Date: 20210420
  Serious: Yes (Other)
  Sender: FDA-Public Use
  Company Number: NVSC2021US030606

PATIENT
  Sex: Male

DRUGS (1)
  1. HYDROXYCHLOROQUINE SULFATE TABLETS USP [Suspect]
     Active Substance: HYDROXYCHLOROQUINE SULFATE
     Indication: COVID-19
     Dosage: 200 MG, BID
     Route: 065
     Dates: start: 2020, end: 2020

REACTIONS (4)
  - Electrocardiogram QT prolonged [Unknown]
  - Acute kidney injury [Unknown]
  - Phospholipidosis [Unknown]
  - Product use in unapproved indication [Unknown]
